FAERS Safety Report 14523788 (Version 3)
Quarter: 2018Q1

REPORT INFORMATION
  Report Type: Spontaneous
  Country: US (occurrence: US)
  Receive Date: 20180213
  Receipt Date: 20180323
  Transmission Date: 20180509
  Serious: No
  Sender: FDA-Public Use
  Company Number: PHEH2018US005800

PATIENT
  Sex: Male

DRUGS (2)
  1. LENVIMA [Suspect]
     Active Substance: LENVATINIB
     Indication: RENAL CANCER
     Dosage: 18 MG, QD
     Route: 048
     Dates: start: 20180205
  2. AFINITOR [Suspect]
     Active Substance: EVEROLIMUS
     Indication: RENAL CANCER
     Route: 065

REACTIONS (14)
  - Muscular weakness [Unknown]
  - Rhinorrhoea [Unknown]
  - Iron deficiency anaemia [Unknown]
  - Malnutrition [Unknown]
  - Weight decreased [Unknown]
  - Decreased appetite [Unknown]
  - Vision blurred [Unknown]
  - Ageusia [Unknown]
  - Nervousness [Unknown]
  - Fatigue [Unknown]
  - Dysphagia [Unknown]
  - Hypertension [Recovering/Resolving]
  - Ill-defined disorder [Unknown]
  - Influenza [Unknown]
